FAERS Safety Report 11625549 (Version 2)
Quarter: 2015Q4

REPORT INFORMATION
  Report Type: Spontaneous
  Country: US (occurrence: US)
  Receive Date: 20151013
  Receipt Date: 20151204
  Transmission Date: 20160304
  Serious: No
  Sender: FDA-Public Use
  Company Number: US-PFIZER INC-2015337031

PATIENT
  Age: 51 Year
  Sex: Male
  Weight: 97.51 kg

DRUGS (1)
  1. NEURONTIN [Suspect]
     Active Substance: GABAPENTIN
     Dosage: UNK, 3X/DAY (A HIGH DOSE)

REACTIONS (4)
  - Fatigue [Recovering/Resolving]
  - Drug ineffective [Unknown]
  - Blepharospasm [Recovering/Resolving]
  - Nausea [Recovering/Resolving]
